FAERS Safety Report 9642254 (Version 2)
Quarter: 2013Q4

REPORT INFORMATION
  Report Type: Report from Study
  Country: DE (occurrence: DE)
  Receive Date: 20131024
  Receipt Date: 20131101
  Transmission Date: 20140711
  Serious: Yes (Hospitalization)
  Sender: FDA-Public Use
  Company Number: DE-AMGEN-DEUCT2013073947

PATIENT
  Age: 74 Year
  Sex: Female

DRUGS (3)
  1. PANITUMUMAB [Suspect]
     Indication: OVARIAN CANCER
     Dosage: 6 MG/KG, UNK
     Route: 042
     Dates: start: 20130527
  2. PEGYLATED LIPOSOMAL DOXORUBICIN HYDROCHLORIDE [Concomitant]
     Indication: OVARIAN CANCER
     Dosage: 30 MG/M2, UNK
     Route: 042
     Dates: start: 20130527
  3. CARBOPLATIN [Concomitant]
     Indication: OVARIAN CANCER
     Dosage: 5 AUC.
     Route: 042
     Dates: start: 20130527

REACTIONS (1)
  - Abdominal pain [Recovered/Resolved]
